FAERS Safety Report 9604136 (Version 1)
Quarter: 2013Q4

REPORT INFORMATION
  Report Type: Spontaneous
  Country: SI (occurrence: SI)
  Receive Date: 20131008
  Receipt Date: 20131008
  Transmission Date: 20140711
  Serious: Yes (Hospitalization, Other)
  Sender: FDA-Public Use
  Company Number: SI-AMGEN-SVNSP2013069772

PATIENT
  Age: 73 Year
  Sex: Female
  Weight: 61.5 kg

DRUGS (3)
  1. PROLIA [Suspect]
     Indication: OSTEOPOROSIS POSTMENOPAUSAL
     Dosage: 60 MG, UNK
     Route: 058
     Dates: start: 20110518
  2. ERYCYTOL                           /00091801/ [Concomitant]
     Dosage: UNK
  3. PLIVIT D3 [Concomitant]
     Dosage: 35 UNK, UNK

REACTIONS (1)
  - Lumbar vertebral fracture [Recovering/Resolving]
